FAERS Safety Report 4756556-2 (Version None)
Quarter: 2005Q3

REPORT INFORMATION
  Report Type: 
  Country: None (occurrence: None)
  Receive Date: 20050830
  Receipt Date: 20050822
  Transmission Date: 20060218
  Serious: Yes (Other)
  Sender: FDA-Public Use
  Company Number: US-GLAXOSMITHKLINE-A0571145A

PATIENT
  Age: 42 Year
  Sex: Male
  Weight: 145 kg

DRUGS (1)
  1. TUMS [Suspect]
     Route: 048

REACTIONS (1)
  - NEPHROLITHIASIS [None]
